FAERS Safety Report 8176152-7 (Version None)
Quarter: 2012Q1

REPORT INFORMATION
  Report Type: 
  Country: None (occurrence: None)
  Receive Date: 20120301
  Receipt Date: 20120222
  Transmission Date: 20120608
  Serious: Yes (Hospitalization)
  Sender: FDA-Public Use
  Company Number: US-JNJFOC-20110300948

PATIENT
  Sex: Female
  Weight: 91.3 kg

DRUGS (9)
  1. DOXORUBICIN HCL [Suspect]
     Route: 042
     Dates: start: 20091105
  2. DOXORUBICIN HCL [Suspect]
     Route: 042
     Dates: start: 20100415
  3. EVISTA [Concomitant]
     Route: 065
  4. LEFLUNOMIDE [Concomitant]
     Route: 065
  5. DOXORUBICIN HCL [Suspect]
     Indication: OVARIAN CANCER STAGE III
     Route: 042
  6. ATENOLOL [Concomitant]
     Route: 065
  7. PREDNISONE TAB [Concomitant]
     Route: 065
  8. LANSOPRAZOLE [Concomitant]
     Route: 065
  9. DIFLUNISAL [Concomitant]
     Route: 065

REACTIONS (6)
  - PULMONARY EMBOLISM [None]
  - VOMITING [None]
  - DEEP VEIN THROMBOSIS [None]
  - NAUSEA [None]
  - INTERSTITIAL LUNG DISEASE [None]
  - DIARRHOEA [None]
